FAERS Safety Report 13439382 (Version 3)
Quarter: 2017Q2

REPORT INFORMATION
  Report Type: Report from Study
  Country: US (occurrence: BR)
  Receive Date: 20170413
  Receipt Date: 20170608
  Transmission Date: 20170830
  Serious: Yes (Death, Hospitalization)
  Sender: FDA-Public Use
  Company Number: US-SUNOVION-2017SUN001520

PATIENT
  Sex: Male

DRUGS (2)
  1. INDACATEROL AND GLYCOPYRROLATE [Suspect]
     Active Substance: GLYCOPYRROLATE\INDACATEROL MALEATE
     Indication: LUNG DISORDER
  2. INDACATEROL AND GLYCOPYRROLATE [Suspect]
     Active Substance: GLYCOPYRROLATE\INDACATEROL MALEATE
     Indication: PULMONARY OEDEMA
     Dosage: UNK
     Route: 065

REACTIONS (6)
  - Lung disorder [Unknown]
  - Product use issue [Unknown]
  - Pneumonia [Fatal]
  - Malaise [Unknown]
  - Swelling [Unknown]
  - Influenza [Unknown]
